FAERS Safety Report 6888232-4 (Version None)
Quarter: 2010Q3

REPORT INFORMATION
  Report Type: 
  Country: None (occurrence: None)
  Receive Date: 20100730
  Receipt Date: 20100719
  Transmission Date: 20110219
  Serious: Yes (Hospitalization)
  Sender: FDA-Public Use
  Company Number: GXKR2010US07997

PATIENT
  Age: 61 Year
  Sex: Male

DRUGS (2)
  1. PRAMIPEXOLE (NGX) [Suspect]
     Indication: RESTLESS LEGS SYNDROME
     Dosage: 0.125 MG, QD
     Route: 065
  2. PRAMIPEXOLE (NGX) [Suspect]
     Dosage: 1 MG, QD
     Route: 065

REACTIONS (4)
  - DRUG DEPENDENCE [None]
  - LIBIDO INCREASED [None]
  - PATHOLOGICAL GAMBLING [None]
  - SUICIDE ATTEMPT [None]
